FAERS Safety Report 15777371 (Version 4)
Quarter: 2019Q1

REPORT INFORMATION
  Report Type: Spontaneous
  Country: US (occurrence: US)
  Receive Date: 20181231
  Receipt Date: 20190220
  Transmission Date: 20190417
  Serious: Yes (Other)
  Sender: FDA-Public Use
  Company Number: US-CLOVIS ONCOLOGY-CLO-2018-001794

PATIENT
  Age: 76 Year
  Sex: Female

DRUGS (3)
  1. RUBRACA [Suspect]
     Active Substance: RUCAPARIB CAMSYLATE
     Indication: OVARIAN CANCER
     Dosage: 600 MG, BID
     Dates: start: 2018, end: 2018
  2. RUBRACA [Suspect]
     Active Substance: RUCAPARIB CAMSYLATE
     Dosage: 600 MG, BID
     Dates: start: 20180730, end: 201901
  3. OXYCODONE [Concomitant]
     Active Substance: OXYCODONE
     Indication: PRODUCT USED FOR UNKNOWN INDICATION

REACTIONS (13)
  - Platelet count decreased [Unknown]
  - Stomatitis [Not Recovered/Not Resolved]
  - White blood cell count decreased [Recovering/Resolving]
  - Acute myeloid leukaemia [Unknown]
  - Pain in extremity [Unknown]
  - Small intestinal obstruction [Unknown]
  - Carbohydrate antigen 125 increased [Unknown]
  - Fatigue [Recovering/Resolving]
  - Product dose omission [Unknown]
  - Laboratory test abnormal [Unknown]
  - Therapy non-responder [Unknown]
  - Hypoaesthesia oral [Not Recovered/Not Resolved]
  - Nausea [Not Recovered/Not Resolved]

NARRATIVE: CASE EVENT DATE: 2018
